FAERS Safety Report 7573623-9 (Version None)
Quarter: 2011Q2

REPORT INFORMATION
  Report Type: 
  Country: None (occurrence: None)
  Receive Date: 20110627
  Receipt Date: 20110612
  Transmission Date: 20111010
  Serious: Yes (Death, Hospitalization, Other)
  Sender: FDA-Public Use
  Company Number: IL-ROCHE-770664

PATIENT
  Sex: Male
  Weight: 64 kg

DRUGS (9)
  1. FUSID [Concomitant]
  2. VASODIP [Concomitant]
  3. PRILOSEC [Concomitant]
  4. CODEX [Concomitant]
  5. NOVONORM [Concomitant]
  6. COUMADIN [Concomitant]
  7. METHOXY POLYETHYLENE GLYCOL-EPOETIN BETA [Suspect]
     Dosage: DOSE: 750 UG/ML
     Route: 042
     Dates: start: 20100523
  8. METHOXY POLYETHYLENE GLYCOL-EPOETIN BETA [Suspect]
     Dosage: DOSE: 960 MCG/M (FREQUENCY: X1/U).
     Route: 042
  9. LOPRESSOR [Concomitant]

REACTIONS (5)
  - RESPIRATORY DISORDER [None]
  - PLEURAL EFFUSION [None]
  - VENTRICULAR FIBRILLATION [None]
  - DYSPNOEA [None]
  - SPONTANEOUS HAEMATOMA [None]
